FAERS Safety Report 13500734 (Version 27)
Quarter: 2018Q3

REPORT INFORMATION
  Report Type: Spontaneous
  Country: US (occurrence: US)
  Receive Date: 20170501
  Receipt Date: 20180807
  Transmission Date: 20181010
  Serious: Yes (Hospitalization)
  Sender: FDA-Public Use
  Company Number: US-ACTELION-A-US2017-153174

PATIENT
  Age: 52 Year
  Sex: Female
  Weight: 102.4 kg

DRUGS (22)
  1. ANASTROZOLE. [Concomitant]
     Active Substance: ANASTROZOLE
  2. UPTRAVI [Suspect]
     Active Substance: SELEXIPAG
     Dosage: 400 MCG, BID
     Route: 048
  3. UPTRAVI [Suspect]
     Active Substance: SELEXIPAG
     Dosage: 1400 MCG, BID
     Route: 048
  4. UPTRAVI [Suspect]
     Active Substance: SELEXIPAG
     Dosage: 800 MCG, BID
     Route: 048
     Dates: start: 20180228
  5. SILDENAFIL CITRATE. [Concomitant]
     Active Substance: SILDENAFIL CITRATE
  6. METOPROLOL TARTRATE. [Concomitant]
     Active Substance: METOPROLOL TARTRATE
  7. FUROSEMIDE. [Concomitant]
     Active Substance: FUROSEMIDE
  8. UPTRAVI [Suspect]
     Active Substance: SELEXIPAG
     Dosage: 800 MCG, QD
     Route: 048
  9. AMBRISENTAN [Suspect]
     Active Substance: AMBRISENTAN
     Indication: PULMONARY HYPERTENSION
     Dosage: 10 MG, QD
     Route: 048
     Dates: start: 20160705
  10. UPTRAVI [Suspect]
     Active Substance: SELEXIPAG
     Dosage: 800 MCG, BID
     Route: 048
     Dates: start: 20170506
  11. ADEMPAS [Concomitant]
     Active Substance: RIOCIGUAT
     Dosage: 2.0 MG, TID
     Route: 048
  12. OPSUMIT [Suspect]
     Active Substance: MACITENTAN
     Indication: PULMONARY ARTERIAL HYPERTENSION
     Dosage: 10 MG, QD
     Route: 048
  13. UPTRAVI [Suspect]
     Active Substance: SELEXIPAG
     Dosage: 600 MCG, BID
     Route: 048
  14. LASIX [Concomitant]
     Active Substance: FUROSEMIDE
  15. ADEMPAS [Concomitant]
     Active Substance: RIOCIGUAT
     Dosage: 2.5 MG, TID
     Route: 048
  16. REMODULIN [Concomitant]
     Active Substance: TREPROSTINIL
  17. ADCIRCA [Concomitant]
     Active Substance: TADALAFIL
  18. HYDROCHLOROTHIAZIDE. [Concomitant]
     Active Substance: HYDROCHLOROTHIAZIDE
  19. UPTRAVI [Suspect]
     Active Substance: SELEXIPAG
     Indication: PULMONARY ARTERIAL HYPERTENSION
     Dosage: 200 MCG, BID
     Route: 048
  20. UPTRAVI [Suspect]
     Active Substance: SELEXIPAG
     Dosage: 1000 MCG, BID
     Route: 048
  21. UPTRAVI [Suspect]
     Active Substance: SELEXIPAG
     Dosage: 400 MCG, UNK
     Route: 048
  22. METFORMIN [Concomitant]
     Active Substance: METFORMIN HYDROCHLORIDE

REACTIONS (51)
  - Musculoskeletal pain [Unknown]
  - Pain [Unknown]
  - Abdominal discomfort [Unknown]
  - Dizziness [Unknown]
  - Catheter site pain [Unknown]
  - Infusion site pruritus [Unknown]
  - Arthralgia [Unknown]
  - Peripheral swelling [Unknown]
  - Cellulitis [Unknown]
  - Influenza [Unknown]
  - Fatigue [Unknown]
  - Muscle spasms [Not Recovered/Not Resolved]
  - Dyspnoea [Unknown]
  - Headache [Recovered/Resolved]
  - Urticaria [Unknown]
  - Nasal congestion [Unknown]
  - Rhinorrhoea [Unknown]
  - Chest discomfort [Unknown]
  - Malaise [Unknown]
  - Incorrect drug administration rate [Unknown]
  - Flushing [Recovered/Resolved]
  - Decreased appetite [Recovered/Resolved]
  - Nausea [Unknown]
  - Rash generalised [Unknown]
  - Toothache [Unknown]
  - Tooth disorder [Unknown]
  - Therapeutic response decreased [Unknown]
  - Drug ineffective [Unknown]
  - Dysgeusia [Unknown]
  - Asthenia [Unknown]
  - Dyspnoea exertional [Unknown]
  - Nasopharyngitis [Unknown]
  - Intentional product use issue [Unknown]
  - Neck pain [Unknown]
  - Myalgia [Not Recovered/Not Resolved]
  - Aphasia [Unknown]
  - Migraine [Unknown]
  - Diarrhoea [Not Recovered/Not Resolved]
  - Oral disorder [Unknown]
  - Dehydration [Recovered/Resolved]
  - Pain in extremity [Not Recovered/Not Resolved]
  - Blood potassium decreased [Unknown]
  - Cough [Unknown]
  - Pulmonary hypertension [Unknown]
  - Disease progression [Unknown]
  - Palpitations [Unknown]
  - Extremity contracture [Unknown]
  - Rash [Unknown]
  - Confusional state [Unknown]
  - Hypotension [Unknown]
  - Device infusion issue [Unknown]

NARRATIVE: CASE EVENT DATE: 20180228
